FAERS Safety Report 8280581-0 (Version None)
Quarter: 2012Q2

REPORT INFORMATION
  Report Type: 
  Country: None (occurrence: None)
  Receive Date: 20120412
  Receipt Date: 20120222
  Transmission Date: 20120825
  Serious: No
  Sender: FDA-Public Use
  Company Number: US-ASTRAZENECA-2012SE12544

PATIENT
  Age: 72 Year
  Sex: Male
  Weight: 102.1 kg

DRUGS (6)
  1. NEXIUM [Suspect]
     Dosage: EVERY OTHER DAY
     Route: 048
  2. ARTRIAL FIBRILATION MEDICATION [Concomitant]
     Indication: ATRIAL FIBRILLATION
  3. HYPERTENSION MEDICATION [Concomitant]
     Indication: HYPERTENSION
  4. NEXIUM [Suspect]
     Indication: GASTROOESOPHAGEAL REFLUX DISEASE
     Route: 048
  5. RANITIDINE [Concomitant]
     Indication: GASTROOESOPHAGEAL REFLUX DISEASE
  6. PRILOSEC OTC [Suspect]
     Route: 048

REACTIONS (6)
  - DRUG DOSE OMISSION [None]
  - FLATULENCE [None]
  - CONSTIPATION [None]
  - DIARRHOEA [None]
  - OFF LABEL USE [None]
  - DRUG INEFFECTIVE [None]
